FAERS Safety Report 21867540 (Version 2)
Quarter: 2023Q1

REPORT INFORMATION
  Report Type: Spontaneous
  Country: US (occurrence: US)
  Receive Date: 20230116
  Receipt Date: 20230222
  Transmission Date: 20230417
  Serious: Yes (Hospitalization, Other)
  Sender: FDA-Public Use
  Company Number: US-BIOVITRUM-2022US15456

PATIENT
  Age: 0 Year
  Sex: Female

DRUGS (6)
  1. SYNAGIS [Suspect]
     Active Substance: PALIVIZUMAB
     Indication: Antiviral prophylaxis
     Dates: start: 202210
  2. CALCIUM CARBONATE [Concomitant]
     Active Substance: CALCIUM CARBONATE
     Dosage: 250 MG/ML, 1.34 ML (335 MG/D)
  3. VD [Concomitant]
     Dosage: 400 UI/D 1 DROP/DAY
  4. POLY VI SOL WITH IRON [Concomitant]
     Dosage: 11 MG/ML, 0.5 ML/D
  5. LEVOTHYROXINE [Concomitant]
     Active Substance: LEVOTHYROXINE
     Dosage: CURRENTLY ON TABLET 12.5 MCG/DAY FOR 5 DAYS AND 1 DAY 25 MCG.
  6. SOD PHOSPHATE [Concomitant]
     Dosage: 3 MMOL/ML, 0.67 ML (2 MMOL) BID (PIN TO TOP)

REACTIONS (4)
  - Bronchiolitis [Unknown]
  - Upper respiratory tract infection [Unknown]
  - Otitis media [Unknown]
  - Intestinal dilatation [Unknown]

NARRATIVE: CASE EVENT DATE: 20221007
